FAERS Safety Report 6750519-3 (Version None)
Quarter: 2010Q2

REPORT INFORMATION
  Report Type: 
  Country: None (occurrence: None)
  Receive Date: 20100528
  Receipt Date: 20100528
  Transmission Date: 20101027
  Serious: Yes (Other)
  Sender: FDA-Public Use
  Company Number: None

PATIENT
  Sex: Male
  Weight: 97.5234 kg

DRUGS (1)
  1. LEVAQUIN [Suspect]
     Indication: SINUSITIS
     Dosage: 500MG ONCE DAILY PO
     Route: 048
     Dates: start: 20100320, end: 20100330

REACTIONS (5)
  - DRUG INEFFECTIVE [None]
  - MYALGIA [None]
  - PHOTOSENSITIVITY REACTION [None]
  - RASH PUSTULAR [None]
  - TENDONITIS [None]
